FAERS Safety Report 25731216 (Version 1)
Quarter: 2025Q3

REPORT INFORMATION
  Report Type: Spontaneous
  Country: US (occurrence: US)
  Receive Date: 20250827
  Receipt Date: 20250827
  Transmission Date: 20251020
  Serious: Yes (Hospitalization)
  Sender: ELI LILLY AND COMPANY
  Company Number: US-ELI_LILLY_AND_COMPANY-US202508022282

PATIENT
  Age: 69 Year
  Sex: Female

DRUGS (6)
  1. ZEPBOUND [Suspect]
     Active Substance: TIRZEPATIDE
     Indication: Weight control
     Route: 065
     Dates: start: 20240918
  2. ZEPBOUND [Suspect]
     Active Substance: TIRZEPATIDE
     Indication: Weight control
     Route: 065
     Dates: end: 20250806
  3. ZEPBOUND [Suspect]
     Active Substance: TIRZEPATIDE
     Indication: Weight control
     Route: 065
     Dates: end: 20250806
  4. ZEPBOUND [Suspect]
     Active Substance: TIRZEPATIDE
     Indication: Weight control
     Route: 065
     Dates: end: 20250806
  5. ZEPBOUND [Suspect]
     Active Substance: TIRZEPATIDE
     Indication: Weight control
     Route: 065
     Dates: end: 20250806
  6. REPATHA [Concomitant]
     Active Substance: EVOLOCUMAB
     Indication: Blood triglycerides increased
     Dates: start: 20240908

REACTIONS (5)
  - Intestinal obstruction [Recovered/Resolved]
  - Impaired gastric emptying [Recovered/Resolved]
  - Mobility decreased [Unknown]
  - Asthenia [Unknown]
  - Constipation [Unknown]

NARRATIVE: CASE EVENT DATE: 20250809
